FAERS Safety Report 6618438-0 (Version None)
Quarter: 2010Q1

REPORT INFORMATION
  Report Type: 
  Country: None (occurrence: None)
  Receive Date: 20100308
  Receipt Date: 20100301
  Transmission Date: 20100710
  Serious: Yes (Other)
  Sender: FDA-Public Use
  Company Number: US-JNJFOC-20060906203

PATIENT
  Sex: Female
  Weight: 89.36 kg

DRUGS (2)
  1. RISPERDAL [Suspect]
     Indication: SLEEP DISORDER THERAPY
  2. RISPERDAL [Suspect]
     Indication: AFFECTIVE DISORDER

REACTIONS (2)
  - SEDATION [None]
  - TYPE 2 DIABETES MELLITUS [None]
